FAERS Safety Report 25526003 (Version 1)
Quarter: 2025Q3

REPORT INFORMATION
  Report Type: Spontaneous
  Country: EU (occurrence: EU)
  Receive Date: 20250707
  Receipt Date: 20250707
  Transmission Date: 20251021
  Serious: Yes (Hospitalization)
  Sender: NOVARTIS
  Company Number: None

PATIENT
  Age: 11 Year
  Sex: Female
  Weight: 31 kg

DRUGS (2)
  1. EXJADE [Suspect]
     Active Substance: DEFERASIROX
     Indication: Haemosiderosis
     Route: 048
     Dates: start: 201412, end: 202505
  2. DESFERAL [Concomitant]
     Active Substance: DEFEROXAMINE MESYLATE
     Indication: Haemosiderosis
     Route: 058
     Dates: start: 20250326

REACTIONS (5)
  - Colitis [Unknown]
  - Pyrexia [Unknown]
  - Diarrhoea [Unknown]
  - Weight decreased [Unknown]
  - Transaminases increased [Unknown]

NARRATIVE: CASE EVENT DATE: 20241204
